FAERS Safety Report 17421509 (Version 1)
Quarter: 2020Q1

REPORT INFORMATION
  Report Type: Report from Study
  Country: ES (occurrence: ES)
  Receive Date: 20200214
  Receipt Date: 20200214
  Transmission Date: 20200409
  Serious: Yes (Hospitalization)
  Sender: FDA-Public Use
  Company Number: ES-PFIZER INC-2020063706

PATIENT
  Age: 73 Year
  Sex: Male
  Weight: 81 kg

DRUGS (10)
  1. IRINOTECAN HCL [Suspect]
     Active Substance: IRINOTECAN HYDROCHLORIDE
     Indication: COLORECTAL CANCER
     Dosage: 360 MG, CYCLIC (EVERY 2 WEEKS)
     Route: 042
     Dates: start: 20191113, end: 20191113
  2. FLUOROURACIL. [Suspect]
     Active Substance: FLUOROURACIL
     Dosage: 800 MG, CYCLIC (EVERY 2 WEEKS)
     Route: 040
     Dates: start: 20191113, end: 20191113
  3. AFLIBERCEPT [Suspect]
     Active Substance: AFLIBERCEPT
     Dosage: 356 MG, CYCLIC (EVERY 2 WEEKS)
     Route: 042
     Dates: start: 20200102, end: 20200102
  4. FLUOROURACIL. [Suspect]
     Active Substance: FLUOROURACIL
     Indication: COLORECTAL CANCER
     Dosage: 4800 MG, CYCLIC (EVERY 2 WEEKS)
     Route: 042
     Dates: start: 20191113, end: 20191113
  5. CALCIUM FOLINATE [Suspect]
     Active Substance: LEUCOVORIN CALCIUM
     Indication: COLORECTAL CANCER
     Dosage: 800 MG, CYCLIC (EVERY 2 WEEKS)
     Dates: start: 20191113, end: 20191113
  6. AFLIBERCEPT [Suspect]
     Active Substance: AFLIBERCEPT
     Indication: COLORECTAL CANCER
     Dosage: 356 MG, CYCLIC (EVERY 2 WEEKS)
     Route: 042
     Dates: start: 20191113, end: 20191113
  7. FLUOROURACIL. [Suspect]
     Active Substance: FLUOROURACIL
     Dosage: 800 MG, CYCLIC (EVERY 2 WEEKS)
     Route: 040
     Dates: start: 20200102, end: 20200102
  8. IRINOTECAN HCL [Suspect]
     Active Substance: IRINOTECAN HYDROCHLORIDE
     Dosage: 360 MG, CYCLIC (EVERY 2 WEEKS)
     Route: 042
     Dates: start: 20200102, end: 20200102
  9. FLUOROURACIL. [Suspect]
     Active Substance: FLUOROURACIL
     Dosage: 4800 MG, CYCLIC (EVERY 2 WEEKS)
     Route: 042
     Dates: start: 20200102, end: 20200102
  10. CALCIUM FOLINATE [Suspect]
     Active Substance: LEUCOVORIN CALCIUM
     Dosage: 800 MG, CYCLIC (EVERY 2 WEEKS)
     Dates: start: 20200102, end: 20200102

REACTIONS (1)
  - Oesophagitis [Recovering/Resolving]

NARRATIVE: CASE EVENT DATE: 20200113
